FAERS Safety Report 4451344-9 (Version None)
Quarter: 2004Q3

REPORT INFORMATION
  Report Type: 
  Country: None (occurrence: None)
  Receive Date: 20040916
  Receipt Date: 20040908
  Transmission Date: 20050211
  Serious: Yes (Hospitalization)
  Sender: FDA-Public Use
  Company Number: DE-BRISTOL-MYERS SQUIBB COMPANY-12695037

PATIENT
  Age: 24 Year
  Sex: Male

DRUGS (3)
  1. CISPLATIN [Suspect]
     Indication: EXTRAGONADAL PRIMARY MALIGNANT TERATOMA
  2. BLEOMYCIN SULFATE [Suspect]
     Indication: EXTRAGONADAL PRIMARY MALIGNANT TERATOMA
  3. ETOPOSIDE [Suspect]
     Indication: EXTRAGONADAL PRIMARY MALIGNANT TERATOMA

REACTIONS (1)
  - ACUTE MYOCARDIAL INFARCTION [None]
